FAERS Safety Report 5603287-2 (Version None)
Quarter: 2008Q1

REPORT INFORMATION
  Report Type: 
  Country: None (occurrence: None)
  Receive Date: 20080122
  Receipt Date: 20080111
  Transmission Date: 20080703
  Serious: Yes (Death)
  Sender: FDA-Public Use
  Company Number: E2020-02122-SPO-JP

PATIENT
  Age: 72 Year
  Sex: Female

DRUGS (1)
  1. ARICEPT [Suspect]
     Indication: DEMENTIA ALZHEIMER'S TYPE
     Dosage: ORAL; 10 MG, 1 IN 1 D, ORAL
     Route: 048

REACTIONS (1)
  - CARDIAC ARREST [None]
